FAERS Safety Report 5540665-4 (Version None)
Quarter: 2007Q4

REPORT INFORMATION
  Report Type: 
  Country: None (occurrence: None)
  Receive Date: 20071129
  Receipt Date: 20070821
  Transmission Date: 20080405
  Serious: Yes (Other)
  Sender: FDA-Public Use
  Company Number: US200708004627

PATIENT
  Sex: Male

DRUGS (3)
  1. ZYPREXA [Suspect]
     Dates: start: 20020901, end: 20050701
  2. RISPERIDONE [Concomitant]
  3. SEROQUEL [Concomitant]

REACTIONS (5)
  - BLOOD PRESSURE INCREASED [None]
  - HEART RATE INCREASED [None]
  - LOSS OF CONSCIOUSNESS [None]
  - ROAD TRAFFIC ACCIDENT [None]
  - WEIGHT INCREASED [None]
